FAERS Safety Report 6123559-5 (Version None)
Quarter: 2009Q1

REPORT INFORMATION
  Report Type: 
  Country: None (occurrence: None)
  Receive Date: 20090319
  Receipt Date: 20090306
  Transmission Date: 20090719
  Serious: Yes (Other)
  Sender: FDA-Public Use
  Company Number: DE-RANBAXY-2009RR-22500

PATIENT
  Age: 60 Year
  Sex: Female
  Weight: 108 kg

DRUGS (1)
  1. GABAPENTIN [Suspect]
     Indication: NEUROPATHY PERIPHERAL
     Dosage: UNK MG, UNK
     Dates: start: 20081128, end: 20081216

REACTIONS (8)
  - CHEST PAIN [None]
  - COUGH [None]
  - DIZZINESS [None]
  - PAIN IN JAW [None]
  - PALPITATIONS [None]
  - THROAT TIGHTNESS [None]
  - TREMOR [None]
  - WEIGHT INCREASED [None]
